FAERS Safety Report 18047573 (Version 3)
Quarter: 2020Q3

REPORT INFORMATION
  Report Type: Report from Study
  Country: US (occurrence: US)
  Receive Date: 20200721
  Receipt Date: 20200801
  Transmission Date: 20201103
  Serious: Yes (Other)
  Sender: FDA-Public Use
  Company Number: US-TEVA-2020-US-1803875

PATIENT
  Age: 28 Year
  Sex: Female

DRUGS (1)
  1. CLARAVIS [Suspect]
     Active Substance: ISOTRETINOIN
     Dosage: 40 MILLIGRAM DAILY; AVERAGE DAILY DOSE: 40 MG
     Route: 065
     Dates: start: 20200519, end: 20200713

REACTIONS (1)
  - Unintended pregnancy [Unknown]
